FAERS Safety Report 9711349 (Version 3)
Quarter: 2014Q1

REPORT INFORMATION
  Report Type: Spontaneous
  Country: CA (occurrence: CA)
  Receive Date: 20131126
  Receipt Date: 20140116
  Transmission Date: 20141002
  Serious: Yes (Other)
  Sender: FDA-Public Use
  Company Number: CA-BAYER-2013-140341

PATIENT
  Age: 41 Year
  Sex: Female
  Weight: 61 kg

DRUGS (2)
  1. CIPRO XL [Suspect]
     Indication: PYELONEPHRITIS
     Dosage: 500 MG, BID
     Route: 042
     Dates: start: 20130330, end: 20130402
  2. CIPRO XL [Suspect]
     Indication: PYELONEPHRITIS
     Dosage: UNK, QD
     Route: 048

REACTIONS (15)
  - Anxiety [Recovered/Resolved]
  - Arthropathy [Recovered/Resolved]
  - Bradycardia [Recovered/Resolved]
  - Dyskinesia [Recovered/Resolved]
  - Dyspnoea [Recovered/Resolved]
  - Hallucination [Recovered/Resolved]
  - Heart rate irregular [Recovered/Resolved]
  - Hyperhidrosis [Recovered/Resolved]
  - Hypertension [Recovered/Resolved]
  - Hypokinesia [Recovered/Resolved]
  - Insomnia [Recovered/Resolved]
  - Night sweats [Recovered/Resolved]
  - Palpitations [Recovered/Resolved]
  - Joint crepitation [Recovered/Resolved]
  - Musculoskeletal disorder [Recovered/Resolved]
